FAERS Safety Report 20950988 (Version 2)
Quarter: 2022Q3

REPORT INFORMATION
  Report Type: Report from Study
  Country: IT (occurrence: IT)
  Receive Date: 20220613
  Receipt Date: 20220722
  Transmission Date: 20221026
  Serious: Yes (Other)
  Sender: FDA-Public Use
  Company Number: IT-PFIZER INC-202200789387

PATIENT
  Age: 74 Year
  Sex: Female
  Weight: 65 kg

DRUGS (11)
  1. DACOMITINIB [Suspect]
     Active Substance: DACOMITINIB
     Indication: Non-small cell lung cancer stage IV
     Dosage: 45 MG, 1X/DAY
     Route: 048
     Dates: start: 20220507, end: 20220606
  2. CITALOPRAM [Concomitant]
     Active Substance: CITALOPRAM HYDROBROMIDE
     Indication: Depression
     Dosage: 10GTT DAILY
     Route: 048
     Dates: start: 20220520
  3. ALPRAZOLAM [Concomitant]
     Active Substance: ALPRAZOLAM
     Indication: Depression
     Dosage: 10 GTT DAILY
     Route: 048
     Dates: start: 20220520
  4. FOLIC ACID [Concomitant]
     Active Substance: FOLIC ACID
     Indication: Hypertension
     Dosage: 1 DF
     Route: 048
     Dates: start: 20220401
  5. LOSARTAN [Concomitant]
     Active Substance: LOSARTAN
     Indication: Hypertension
     Dosage: 50 MG
     Route: 048
     Dates: start: 20220401
  6. PREDNISONE [Concomitant]
     Active Substance: PREDNISONE
     Indication: Fungal infection
     Dosage: 12.5 MG
     Route: 048
  7. PREDNISONE [Concomitant]
     Active Substance: PREDNISONE
     Indication: Pharyngeal erythema
     Dosage: 25 MG
     Route: 048
  8. MYCOSTATIN [Concomitant]
     Active Substance: NYSTATIN
     Indication: Fungal infection
     Dosage: UNK
  9. MYCOSTATIN [Concomitant]
     Active Substance: NYSTATIN
     Indication: Pharyngeal erythema
  10. BISOPROLOL FUMARATE [Concomitant]
     Active Substance: BISOPROLOL FUMARATE
     Indication: Hypertension
     Dosage: 1.25 MG
     Route: 048
     Dates: start: 20220401, end: 20220606
  11. ALLOPURINOL [Concomitant]
     Active Substance: ALLOPURINOL
     Indication: Hypertension
     Dosage: 150 MG
     Route: 048
     Dates: start: 20220401, end: 20220606

REACTIONS (4)
  - Blood potassium decreased [Recovered/Resolved]
  - Blood sodium decreased [Recovered/Resolved]
  - Carcinoembryonic antigen increased [Recovered/Resolved]
  - Fatigue [Recovered/Resolved]

NARRATIVE: CASE EVENT DATE: 20220601
